FAERS Safety Report 4498485-8 (Version None)
Quarter: 2004Q4

REPORT INFORMATION
  Report Type: 
  Country: None (occurrence: None)
  Receive Date: 20041105
  Receipt Date: 20041021
  Transmission Date: 20050328
  Serious: Yes (Hospitalization)
  Sender: FDA-Public Use
  Company Number: PHHO2004JP15044

PATIENT
  Age: 75 Year
  Sex: Male

DRUGS (1)
  1. VISUDYNE [Suspect]
     Indication: MACULAR DEGENERATION
     Dates: start: 20040101, end: 20040101

REACTIONS (2)
  - RETINAL HAEMORRHAGE [None]
  - VITREOUS HAEMORRHAGE [None]
